FAERS Safety Report 15367499 (Version 1)
Quarter: 2018Q3

REPORT INFORMATION
  Report Type: Report from Study
  Country: GB (occurrence: GB)
  Receive Date: 20180910
  Receipt Date: 20180910
  Transmission Date: 20181010
  Serious: Yes (Other)
  Sender: FDA-Public Use
  Company Number: PHHY2018GB089772

PATIENT
  Sex: Female

DRUGS (1)
  1. COSENTYX [Suspect]
     Active Substance: SECUKINUMAB
     Indication: PSORIASIS
     Dosage: 300 MG, QW (WEEK 0?WEEK 3) (PRE?FILLED PEN)
     Route: 058
     Dates: start: 20180823

REACTIONS (3)
  - Tearfulness [Unknown]
  - Depressed mood [Unknown]
  - Pruritus [Unknown]
